FAERS Safety Report 15352811 (Version 1)
Quarter: 2018Q4

REPORT INFORMATION
  Report Type: Spontaneous
  Country: IT (occurrence: IT)
  Receive Date: 20180905
  Receipt Date: 20180905
  Transmission Date: 20190204
  Serious: Yes (Other)
  Sender: FDA-Public Use
  Company Number: PHHY2018IT089221

PATIENT
  Age: 55 Year
  Sex: Male

DRUGS (3)
  1. PANTORC [Concomitant]
     Active Substance: PANTOPRAZOLE SODIUM
     Indication: PROPHYLAXIS AGAINST GASTROINTESTINAL ULCER
     Route: 065
  2. VOLTAREN [Suspect]
     Active Substance: DICLOFENAC SODIUM
     Indication: RIB FRACTURE
     Dosage: 1 DF, UNK
     Route: 030
     Dates: start: 20180731, end: 20180731
  3. FENEXTRA [Suspect]
     Active Substance: DEXIBUPROFEN
     Indication: PAIN
     Route: 048
     Dates: start: 20180730, end: 20180730

REACTIONS (3)
  - Dyspnoea [Recovered/Resolved]
  - Urticaria [Recovered/Resolved]
  - Loss of consciousness [Recovered/Resolved]

NARRATIVE: CASE EVENT DATE: 20180731
